FAERS Safety Report 20019929 (Version 1)
Quarter: 2021Q4

REPORT INFORMATION
  Report Type: Spontaneous
  Country: US (occurrence: US)
  Receive Date: 20211101
  Receipt Date: 20211101
  Transmission Date: 20220303
  Serious: No
  Sender: FDA-Public Use
  Company Number: US-PFIZER INC-202101284108

PATIENT
  Age: 61 Year
  Sex: Female

DRUGS (1)
  1. LORBRENA [Suspect]
     Active Substance: LORLATINIB
     Indication: Lung carcinoma cell type unspecified stage IV
     Dosage: 100 MG

REACTIONS (5)
  - Feeling abnormal [Unknown]
  - Anger [Unknown]
  - Hyperacusis [Unknown]
  - Feeling abnormal [Unknown]
  - Sleep disorder [Unknown]
